FAERS Safety Report 4789712-8 (Version None)
Quarter: 2005Q3

REPORT INFORMATION
  Report Type: 
  Country: None (occurrence: None)
  Receive Date: 20050914
  Receipt Date: 20040920
  Transmission Date: 20060218
  Serious: Yes (Hospitalization)
  Sender: FDA-Public Use
  Company Number: 163-20785-04090495

PATIENT
  Age: 54 Year
  Sex: Female
  Weight: 73.9363 kg

DRUGS (16)
  1. THALOMID [Suspect]
     Indication: MULTIPLE MYELOMA
     Dosage: 100-400 MG, DAILY, ORAL
     Route: 048
     Dates: start: 20020722, end: 20040708
  2. DECADRON [Suspect]
     Indication: MULTIPLE MYELOMA
  3. ZOMETA [Concomitant]
  4. BACTRIM DL (BACTRIM) [Concomitant]
  5. ACYCLOVIR [Concomitant]
  6. MS CONTIN [Concomitant]
  7. RANITIDINE [Concomitant]
  8. ZOLOFT [Concomitant]
  9. MULTIVITAMIN [Concomitant]
  10. FOLIC ACID [Concomitant]
  11. LASIX [Concomitant]
  12. TEMAZEPAM [Concomitant]
  13. PEPCID [Concomitant]
  14. AFRIN [Concomitant]
  15. IMODIUM [Concomitant]
  16. SEREVENT [Concomitant]

REACTIONS (2)
  - DEHYDRATION [None]
  - DIARRHOEA [None]
